FAERS Safety Report 8120871-5 (Version None)
Quarter: 2012Q1

REPORT INFORMATION
  Report Type: 
  Country: None (occurrence: None)
  Receive Date: 20120203
  Receipt Date: 20120117
  Transmission Date: 20120608
  Serious: Yes (Other)
  Sender: FDA-Public Use
  Company Number: 20110391

PATIENT
  Age: 45 Year
  Sex: Female

DRUGS (8)
  1. CLARITIN [Concomitant]
  2. DEXAMETHASONE SODIUM PHOSPHATE [Suspect]
     Indication: PLANTAR FASCIITIS
     Dosage: INJECTION NOS
     Route: 042
     Dates: start: 20110201, end: 20110401
  3. DEXAMETHASONE SODIUM PHOSPHATE [Suspect]
     Indication: PAIN
     Dosage: INJECTION NOS
     Route: 042
     Dates: start: 20110201, end: 20110401
  4. DEPO-MEDROL [Suspect]
     Indication: PLANTAR FASCIITIS
     Dosage: INJECTION NOS
     Route: 042
     Dates: start: 20100201, end: 20110401
  5. DEPO-MEDROL [Suspect]
     Indication: PAIN
     Dosage: INJECTION NOS
     Route: 042
     Dates: start: 20100201, end: 20110401
  6. LIDOCAINE 1% INJ [Suspect]
     Indication: PAIN
     Dosage: INJECTION NOS
     Route: 042
     Dates: start: 20110201, end: 20110401
  7. LIDOCAINE 1% INJ [Suspect]
     Indication: PLANTAR FASCIITIS
     Dosage: INJECTION NOS
     Route: 042
     Dates: start: 20110201, end: 20110401
  8. SINGULAIR [Concomitant]

REACTIONS (6)
  - HYPOAESTHESIA [None]
  - INSOMNIA [None]
  - PARAESTHESIA [None]
  - ANXIETY [None]
  - ALOPECIA [None]
  - PHOTOSENSITIVITY REACTION [None]
